FAERS Safety Report 17801910 (Version 1)
Quarter: 2020Q2

REPORT INFORMATION
  Report Type: Spontaneous
  Country: US (occurrence: US)
  Receive Date: 20200519
  Receipt Date: 20200519
  Transmission Date: 20200714
  Serious: No
  Sender: FDA-Public Use
  Company Number: US-SA-2020SA129218

PATIENT
  Sex: Male

DRUGS (1)
  1. DUPIXENT [Suspect]
     Active Substance: DUPILUMAB
     Indication: AUTOIMMUNE DERMATITIS
     Dosage: 300 MG, QOW
     Dates: start: 2019

REACTIONS (1)
  - Product use in unapproved indication [Unknown]
